FAERS Safety Report 4303621-X (Version None)
Quarter: 2004Q1

REPORT INFORMATION
  Report Type: 
  Country: None (occurrence: None)
  Receive Date: 20040225
  Receipt Date: 20040102
  Transmission Date: 20041129
  Serious: Yes (Other)
  Sender: FDA-Public Use
  Company Number: PHBS2004BR00451

PATIENT
  Age: 11 Year
  Sex: Female

DRUGS (1)
  1. TEGRETOL [Suspect]
     Route: 048

REACTIONS (1)
  - ABNORMAL BEHAVIOUR [None]
